FAERS Safety Report 7383558-2 (Version None)
Quarter: 2011Q1

REPORT INFORMATION
  Report Type: 
  Country: None (occurrence: None)
  Receive Date: 20110325
  Receipt Date: 20110325
  Transmission Date: 20110831
  Serious: No
  Sender: FDA-Public Use
  Company Number: None

PATIENT
  Sex: Male

DRUGS (1)
  1. BUPROPION ER 150 [Suspect]
     Indication: DEPRESSION
     Dosage: 150MG 3Q.A.M PO 3 MONTHS PLUS
     Route: 048

REACTIONS (6)
  - DRUG EFFECT DECREASED [None]
  - AGITATION [None]
  - INSOMNIA [None]
  - TREMOR [None]
  - PRODUCT SUBSTITUTION ISSUE [None]
  - IRRITABILITY [None]
